FAERS Safety Report 10168098 (Version 3)
Quarter: 2014Q2

REPORT INFORMATION
  Report Type: Report from Study
  Country: US (occurrence: US)
  Receive Date: 20140512
  Receipt Date: 20140620
  Transmission Date: 20141212
  Serious: Yes (Other)
  Sender: FDA-Public Use
  Company Number: US-BAXTER-2014BAX022569

PATIENT
  Age: 65 Year
  Sex: Female
  Weight: 81.72 kg

DRUGS (6)
  1. GAMMAGARD LIQUID [Suspect]
     Indication: PRIMARY IMMUNODEFICIENCY SYNDROME
     Route: 058
     Dates: start: 2013
  2. GAMMAGARD LIQUID [Suspect]
     Route: 058
     Dates: start: 2012, end: 20140501
  3. XANAX [Concomitant]
     Indication: ANXIETY
     Route: 048
  4. ESCITALOPRAM [Concomitant]
     Indication: PRODUCT USED FOR UNKNOWN INDICATION
     Route: 048
  5. LEXAPRO [Concomitant]
     Indication: MENTAL DISORDER
     Route: 048
  6. METOPROLOL [Concomitant]
     Indication: PRODUCT USED FOR UNKNOWN INDICATION
     Route: 048

REACTIONS (8)
  - Sinusitis [Recovering/Resolving]
  - Bronchitis [Recovering/Resolving]
  - Malaise [Recovering/Resolving]
  - Wheezing [Recovering/Resolving]
  - Sputum abnormal [Recovering/Resolving]
  - Bone pain [Recovering/Resolving]
  - Pain [Recovering/Resolving]
  - Asthenia [Recovering/Resolving]
